FAERS Safety Report 5852485-1 (Version None)
Quarter: 2008Q3

REPORT INFORMATION
  Report Type: 
  Country: None (occurrence: None)
  Receive Date: 20080820
  Receipt Date: 20080820
  Transmission Date: 20090109
  Serious: Yes (Other)
  Sender: FDA-Public Use
  Company Number: None

PATIENT
  Age: 37 Year
  Sex: Female
  Weight: 68.0396 kg

DRUGS (2)
  1. CYMBALTA [Suspect]
     Indication: ANXIETY
     Dates: start: 20040901, end: 20080301
  2. CYMBALTA [Suspect]
     Indication: DEPRESSION
     Dates: start: 20040901, end: 20080301

REACTIONS (11)
  - AGITATION [None]
  - ALCOHOL USE [None]
  - ANGER [None]
  - BIPOLAR DISORDER [None]
  - DEPRESSION [None]
  - FAMILY STRESS [None]
  - HYSTERECTOMY [None]
  - LOSS OF EMPLOYMENT [None]
  - MANIA [None]
  - MOVEMENT DISORDER [None]
  - SOCIAL PROBLEM [None]
